FAERS Safety Report 5336167-0 (Version None)
Quarter: 2007Q2

REPORT INFORMATION
  Report Type: 
  Country: None (occurrence: None)
  Receive Date: 20070302
  Receipt Date: 20061212
  Transmission Date: 20071010
  Serious: No
  Sender: FDA-Public Use
  Company Number: PHEH2006US14278

PATIENT
  Age: 64 Year
  Sex: Female

DRUGS (2)
  1. ENABLEX [Suspect]
     Indication: HYPERTONIC BLADDER
     Dosage: 7.5 MG QD, ORAL;  15 MG, QD, UNK
     Route: 048
     Dates: end: 20061114
  2. ENABLEX [Suspect]
     Indication: HYPERTONIC BLADDER
     Dosage: 7.5 MG QD, ORAL;  15 MG, QD, UNK
     Route: 048
     Dates: start: 20061001

REACTIONS (3)
  - MICTURITION URGENCY [None]
  - PRURITUS [None]
  - RASH [None]
